FAERS Safety Report 20228315 (Version 1)
Quarter: 2021Q4

REPORT INFORMATION
  Report Type: Spontaneous
  Country: JP (occurrence: JP)
  Receive Date: 20211224
  Receipt Date: 20211224
  Transmission Date: 20220303
  Serious: Yes (Hospitalization, Other)
  Sender: FDA-Public Use
  Company Number: JP-BRISTOL-MYERS SQUIBB COMPANY-BMS-2021-019703

PATIENT
  Age: 73 Year
  Sex: Male

DRUGS (2)
  1. YERVOY [Suspect]
     Active Substance: IPILIMUMAB
     Indication: Metastatic renal cell carcinoma
     Dosage: 1 MILLIGRAM/KILOGRAM, 2 TIMES EVERY 3 WEEKS
     Route: 041
     Dates: start: 20200805
  2. OPDIVO [Suspect]
     Active Substance: NIVOLUMAB
     Indication: Metastatic renal cell carcinoma
     Dosage: 3 MILLIGRAM/KILOGRAM, 2 TIMES EVERY 3 WEEKS
     Route: 041
     Dates: start: 20200805

REACTIONS (9)
  - Immune-mediated myocarditis [Recovering/Resolving]
  - Polymyositis [Recovering/Resolving]
  - Atrial fibrillation [Unknown]
  - Hemiplegia [Unknown]
  - Metastases to central nervous system [Unknown]
  - Clonic convulsion [Unknown]
  - Brain oedema [Not Recovered/Not Resolved]
  - Eyelid irritation [Not Recovered/Not Resolved]
  - Memory impairment [Not Recovered/Not Resolved]

NARRATIVE: CASE EVENT DATE: 20200901
